FAERS Safety Report 8871995 (Version 1)
Quarter: 2012Q4

REPORT INFORMATION
  Report Type: 
  Country: US (occurrence: US)
  Receive Date: 20121023
  Receipt Date: 20121023
  Transmission Date: 20130627
  Serious: Yes (Other)
  Sender: FDA-Public Use
  Company Number: US-ASTELLAS-2012US004085

PATIENT

DRUGS (1)
  1. PROGRAF [Suspect]
     Indication: LIVER TRANSPLANT
     Dosage: 1 mg, bid
     Route: 048
     Dates: start: 20050410

REACTIONS (4)
  - Diabetes mellitus [Unknown]
  - Renal disorder [Unknown]
  - Faecal incontinence [Unknown]
  - Urinary incontinence [Unknown]
